FAERS Safety Report 5705377-2 (Version None)
Quarter: 2008Q2

REPORT INFORMATION
  Report Type: 
  Country: None (occurrence: None)
  Receive Date: 20080415
  Receipt Date: 20080410
  Transmission Date: 20081010
  Serious: Yes (Hospitalization)
  Sender: FDA-Public Use
  Company Number: IN-BRISTOL-MYERS SQUIBB COMPANY-14121693

PATIENT
  Age: 20 Year
  Sex: Female

DRUGS (8)
  1. BLINDED: ABATACEPT [Suspect]
     Indication: GLOMERULONEPHRITIS PROLIFERATIVE
     Route: 042
     Dates: start: 20080304
  2. BLINDED: PLACEBO [Suspect]
     Indication: GLOMERULONEPHRITIS PROLIFERATIVE
     Route: 042
     Dates: start: 20080304
  3. MYCOPHENOLATE MOFETIL [Concomitant]
     Indication: GLOMERULONEPHRITIS PROLIFERATIVE
     Route: 048
     Dates: start: 20080304
  4. PREDNISOLONE [Concomitant]
     Route: 048
     Dates: start: 20080304
  5. BECOSULES [Concomitant]
     Dosage: FROM CAPSULE
     Dates: start: 20080207
  6. PANTOPRAZOLE SODIUM [Concomitant]
     Dates: start: 20080304
  7. GATIFLOXACIN [Concomitant]
     Dates: start: 20080319
  8. TORSEMIDE [Concomitant]
     Dates: start: 20080319

REACTIONS (1)
  - INFUSION RELATED REACTION [None]
